FAERS Safety Report 7592611-X (Version None)
Quarter: 2011Q3

REPORT INFORMATION
  Report Type: 
  Country: None (occurrence: None)
  Receive Date: 20110706
  Receipt Date: 20110617
  Transmission Date: 20111222
  Serious: No
  Sender: FDA-Public Use
  Company Number: US-B.I. PHARMACEUTICALS,INC./RIDGEFIELD-2011-BP-15803BP

PATIENT
  Sex: Male

DRUGS (6)
  1. PRADAXA [Suspect]
     Indication: ATRIAL FIBRILLATION
     Dosage: 150 MG
     Route: 048
     Dates: start: 20110501
  2. PROPAFENONE HCL [Concomitant]
     Indication: CARDIAC DISORDER
     Dosage: 300 MG
     Route: 048
     Dates: start: 20010101
  3. METOPROLOL TARTRATE [Concomitant]
     Indication: HYPERTENSION
     Dosage: 50 MG
     Route: 048
     Dates: start: 20010101
  4. TAMSULOSIN HCL [Concomitant]
     Indication: PROSTATIC DISORDER
     Dosage: 4 MG
     Route: 048
     Dates: start: 20060101
  5. M.V.I. [Concomitant]
     Indication: ROUTINE HEALTH MAINTENANCE
     Route: 048
     Dates: start: 20010101
  6. FUROSEMIDE [Concomitant]
     Indication: OEDEMA PERIPHERAL
     Dosage: 20 MG
     Route: 048
     Dates: start: 20110101

REACTIONS (2)
  - BLISTER [None]
  - OEDEMA PERIPHERAL [None]
